FAERS Safety Report 8848149 (Version 2)
Quarter: 2013Q3

REPORT INFORMATION
  Report Type: Spontaneous
  Country: US (occurrence: US)
  Receive Date: 20121018
  Receipt Date: 20130917
  Transmission Date: 20140515
  Serious: Yes (Hospitalization, Disabling, Other)
  Sender: FDA-Public Use
  Company Number: US-MERCK-1210USA006972

PATIENT
  Sex: Female

DRUGS (5)
  1. FOSAMAX [Suspect]
     Indication: OSTEOPENIA
     Dosage: UNK
     Route: 048
     Dates: start: 1999, end: 2007
  2. FOSAMAX [Suspect]
     Indication: OSTEOARTHRITIS
  3. FOSAMAX PLUS D [Suspect]
     Indication: OSTEOPENIA
     Route: 048
  4. FOSAMAX PLUS D [Suspect]
     Indication: OSTEOARTHRITIS
  5. BONIVA [Suspect]
     Indication: OSTEOPOROSIS
     Dosage: UNK
     Dates: start: 2007, end: 2010

REACTIONS (11)
  - Femur fracture [Unknown]
  - Hip fracture [Unknown]
  - Osteoporosis [Unknown]
  - Multiple fractures [Unknown]
  - Femur fracture [Unknown]
  - Bone density decreased [Unknown]
  - Bone disorder [Not Recovered/Not Resolved]
  - Dysarthria [Not Recovered/Not Resolved]
  - Breast cancer [Unknown]
  - Radiotherapy [Unknown]
  - Off label use [Unknown]
